FAERS Safety Report 6973681-6 (Version None)
Quarter: 2010Q3

REPORT INFORMATION
  Report Type: 
  Country: None (occurrence: None)
  Receive Date: 20100909
  Receipt Date: 20100902
  Transmission Date: 20110219
  Serious: Yes (Other)
  Sender: FDA-Public Use
  Company Number: TR-JNJFOC-20100901446

PATIENT
  Age: 13 Year

DRUGS (1)
  1. CONCERTA [Suspect]
     Indication: SCHIZOPHRENIA
     Route: 048

REACTIONS (4)
  - INSOMNIA [None]
  - OFF LABEL USE [None]
  - PYREXIA [None]
  - SUICIDAL IDEATION [None]
